FAERS Safety Report 20451766 (Version 2)
Quarter: 2022Q1

REPORT INFORMATION
  Report Type: Report from Study
  Country: SE (occurrence: SE)
  Receive Date: 20220209
  Receipt Date: 20220224
  Transmission Date: 20220423
  Serious: Yes (Other)
  Sender: FDA-Public Use
  Company Number: SE-NOVARTISPH-NVSC2022SE025281

PATIENT
  Age: 1 Year
  Sex: Male
  Weight: 11.4 kg

DRUGS (3)
  1. TAFINLAR [Suspect]
     Active Substance: DABRAFENIB MESYLATE
     Indication: Langerhans^ cell histiocytosis
     Dosage: 60 MG (LAST DOSE PRIOR TO EVENT ON 27 DEC 2021)
     Route: 048
     Dates: start: 20211218
  2. DIFLUCAN [Concomitant]
     Active Substance: FLUCONAZOLE
     Indication: Prophylaxis
     Dosage: 2.2 ML, PER DAY
     Route: 065
     Dates: start: 20201216, end: 20201227
  3. BACTRIM [Concomitant]
     Active Substance: SULFAMETHOXAZOLE\TRIMETHOPRIM
     Indication: Prophylaxis
     Dosage: 6 ML (2 DAYS/ WEEK)
     Route: 065
     Dates: start: 20210317, end: 20211219

REACTIONS (2)
  - Panniculitis [Recovering/Resolving]
  - Rash [Not Recovered/Not Resolved]

NARRATIVE: CASE EVENT DATE: 20211227
